FAERS Safety Report 6897886-8 (Version None)
Quarter: 2010Q3

REPORT INFORMATION
  Report Type: 
  Country: None (occurrence: None)
  Receive Date: 20100729
  Receipt Date: 20100715
  Transmission Date: 20110219
  Serious: Yes (Hospitalization)
  Sender: FDA-Public Use
  Company Number: 1000013952

PATIENT
  Age: 62 Year
  Sex: Male

DRUGS (12)
  1. ESCITALOPRAM [Suspect]
     Indication: DEPRESSION
     Dosage: 10 MG (10 MG, 1 IN 1 D), ORAL
     Route: 048
  2. ESCITALOPRAM [Suspect]
     Indication: DEPRESSION
     Dosage: 15 MG (15 MG, 1 IN 1 D), ORAL; 10 MG (10 MG, 1 IN 1 D), ORAL
     Route: 048
  3. ALPRAZOLAM [Concomitant]
  4. KARDEGIC [Concomitant]
  5. ACETAMINOPHEN [Concomitant]
  6. MORPHINE [Concomitant]
  7. CORTANCYL [Concomitant]
  8. GABAPENTINE [Concomitant]
  9. NEXIUM [Concomitant]
  10. IMOVANE [Concomitant]
  11. SKENAN [Concomitant]
  12. RIVOTRIL (DROPS (FOR ORAL USE)) [Concomitant]

REACTIONS (1)
  - PETECHIAE [None]
